FAERS Safety Report 8470258-0 (Version None)
Quarter: 2012Q2

REPORT INFORMATION
  Report Type: 
  Country: None (occurrence: None)
  Receive Date: 20120627
  Receipt Date: 20120615
  Transmission Date: 20120825
  Serious: Yes (Hospitalization, Other)
  Sender: FDA-Public Use
  Company Number: US-SANOFI-AVENTIS-2012SA044024

PATIENT
  Age: 54 Year
  Sex: Female

DRUGS (2)
  1. LASIX [Suspect]
     Route: 065
  2. ANTIHYPERTENSIVES [Suspect]
     Route: 048

REACTIONS (5)
  - PNEUMONIA [None]
  - CATHETER SITE INFECTION [None]
  - DEHYDRATION [None]
  - SYNCOPE [None]
  - PYREXIA [None]
